FAERS Safety Report 6142313-1 (Version None)
Quarter: 2009Q2

REPORT INFORMATION
  Report Type: 
  Country: None (occurrence: None)
  Receive Date: 20090402
  Receipt Date: 20090402
  Transmission Date: 20091009
  Serious: Yes (Other)
  Sender: FDA-Public Use
  Company Number: None

PATIENT
  Age: 36 Year
  Sex: Female

DRUGS (1)
  1. PHENYTOIN 100MG CAPS WOCKHARDT [Suspect]
     Indication: CONVULSION
     Dosage: 200 MG TWICE A DAY ORAL
     Route: 048
     Dates: start: 20090310, end: 20090401

REACTIONS (2)
  - ANTICONVULSANT DRUG LEVEL DECREASED [None]
  - CONVULSION [None]
